FAERS Safety Report 8220842-4 (Version None)
Quarter: 2012Q1

REPORT INFORMATION
  Report Type: 
  Country: None (occurrence: None)
  Receive Date: 20120320
  Receipt Date: 20120316
  Transmission Date: 20120608
  Serious: Yes (Other)
  Sender: FDA-Public Use
  Company Number: US-PFIZER INC-2012070077

PATIENT
  Sex: Female
  Weight: 68.027 kg

DRUGS (6)
  1. AVINZA [Suspect]
     Indication: PAIN
     Dosage: 90 MG, DAILY
  2. FLEXERIL [Concomitant]
     Indication: COMPLEX REGIONAL PAIN SYNDROME
  3. TOPAMAX [Concomitant]
     Indication: NEUROPATHY PERIPHERAL
  4. FLEXERIL [Concomitant]
     Indication: NEUROPATHY PERIPHERAL
     Dosage: 10 MG, DAILY
  5. TOPAMAX [Concomitant]
     Indication: PAIN
     Dosage: 100 MG, DAILY
  6. TEGRETOL [Concomitant]
     Dosage: UNK

REACTIONS (1)
  - OSTEOARTHRITIS [None]
